FAERS Safety Report 21165253 (Version 7)
Quarter: 2022Q3

REPORT INFORMATION
  Report Type: Spontaneous
  Country: IT (occurrence: IT)
  Receive Date: 20220803
  Receipt Date: 20220914
  Transmission Date: 20221027
  Serious: Yes (Death)
  Sender: FDA-Public Use
  Company Number: None

PATIENT
  Age: 38 Year
  Sex: Female
  Weight: 45 kg

DRUGS (9)
  1. MOLNUPIRAVIR [Suspect]
     Active Substance: MOLNUPIRAVIR
     Indication: COVID-19
     Dosage: 800 MG, Q12H
     Route: 048
     Dates: start: 20220627, end: 20220702
  2. LYRICA [Concomitant]
     Active Substance: PREGABALIN
     Dosage: 25 MG, Q24H
     Dates: start: 20130101, end: 20220714
  3. PRAMIPEXOLE [Concomitant]
     Active Substance: PRAMIPEXOLE
     Indication: Restless legs syndrome
     Dosage: 0.18 MG, Q24H
     Dates: start: 20130101, end: 20220714
  4. RAMIPRIL [Concomitant]
     Active Substance: RAMIPRIL
     Indication: Blood pressure measurement
     Dosage: 5 MG, Q12H
     Dates: start: 20200101, end: 20220714
  5. BONVIVA [Concomitant]
     Active Substance: IBANDRONATE SODIUM
     Indication: Osteoporosis
     Dosage: 150 MILLIGRAM, QM
     Dates: start: 20130101, end: 20220714
  6. TAVOR (LORAZEPAM) [Concomitant]
     Active Substance: LORAZEPAM
     Indication: Insomnia
     Dosage: 2 MG, Q24H
     Dates: start: 19700101, end: 20220714
  7. FENTANYL [Concomitant]
     Active Substance: FENTANYL
     Dosage: 75 MG
     Dates: start: 20130101, end: 20220714
  8. CYMBALTA [Concomitant]
     Active Substance: DULOXETINE HYDROCHLORIDE
     Indication: Neuralgia
     Dosage: 30 MG, Q24H
     Dates: start: 20130101, end: 20220714
  9. CHOLECALCIFEROL [Concomitant]
     Active Substance: CHOLECALCIFEROL
     Indication: Osteoporosis
     Dosage: 1 VIAL PER MONTH
     Dates: start: 20220101, end: 20220714

REACTIONS (3)
  - Sopor [Fatal]
  - Asthenia [Fatal]
  - Balance disorder [Fatal]

NARRATIVE: CASE EVENT DATE: 20220629
